FAERS Safety Report 10668812 (Version 4)
Quarter: 2015Q2

REPORT INFORMATION
  Report Type: Spontaneous
  Country: US (occurrence: US)
  Receive Date: 20141222
  Receipt Date: 20150608
  Transmission Date: 20150821
  Serious: No
  Sender: FDA-Public Use
  Company Number: US-PFIZER INC-2014348612

PATIENT
  Age: 66 Year
  Sex: Female
  Weight: 116 kg

DRUGS (4)
  1. XANAX [Suspect]
     Active Substance: ALPRAZOLAM
     Dosage: 0.5 MG, DAILY
     Route: 048
     Dates: end: 20141211
  2. COUMADINE [Concomitant]
     Active Substance: WARFARIN SODIUM
     Indication: ATRIAL FIBRILLATION
     Dosage: 6 MG, DAILY
  3. TOPROL XL [Concomitant]
     Active Substance: METOPROLOL SUCCINATE
     Indication: ATRIAL FIBRILLATION
     Dosage: 150 MG, DAILY
  4. XANAX [Suspect]
     Active Substance: ALPRAZOLAM
     Dosage: 0.5 MG, DAILY
     Route: 048
     Dates: start: 201412

REACTIONS (7)
  - Chest discomfort [Recovered/Resolved]
  - Product taste abnormal [Unknown]
  - Product colour issue [Recovered/Resolved]
  - Product size issue [Unknown]
  - Malaise [Unknown]
  - Nausea [Recovered/Resolved]
  - Sedation [Recovered/Resolved]

NARRATIVE: CASE EVENT DATE: 201412
